FAERS Safety Report 25621438 (Version 3)
Quarter: 2025Q3

REPORT INFORMATION
  Report Type: Spontaneous
  Country: JP (occurrence: JP)
  Receive Date: 20250730
  Receipt Date: 20250910
  Transmission Date: 20251021
  Serious: Yes (Hospitalization, Other)
  Sender: ALEXION PHARMACEUTICALS
  Company Number: JP-AstraZeneca-CH-00918259A

PATIENT
  Age: 70 Year
  Sex: Male

DRUGS (2)
  1. IMFINZI [Suspect]
     Active Substance: DURVALUMAB
     Indication: Non-small cell lung cancer
     Dates: start: 202506, end: 202507
  2. IMJUDO [Suspect]
     Active Substance: TREMELIMUMAB\TREMELIMUMAB-ACTL
     Indication: Non-small cell lung cancer
     Dates: start: 202506, end: 202507

REACTIONS (8)
  - Cytokine release syndrome [Recovered/Resolved]
  - Pyrexia [Unknown]
  - Headache [Unknown]
  - Hypoxia [Unknown]
  - Rash [Unknown]
  - Chills [Unknown]
  - Tachypnoea [Unknown]
  - Headache [Unknown]

NARRATIVE: CASE EVENT DATE: 20250723
